FAERS Safety Report 20790671 (Version 4)
Quarter: 2022Q2

REPORT INFORMATION
  Report Type: Report from Study
  Country: AR (occurrence: AR)
  Receive Date: 20220505
  Receipt Date: 20220628
  Transmission Date: 20220720
  Serious: Yes (Death, Hospitalization)
  Sender: FDA-Public Use
  Company Number: AR-002147023-NVSC2022AR094357

PATIENT

DRUGS (1)
  1. RUXOLITINIB [Suspect]
     Active Substance: RUXOLITINIB
     Indication: Myelofibrosis
     Dosage: 20 MG, QD
     Route: 048
     Dates: start: 20220307

REACTIONS (6)
  - Bronchial disorder [Unknown]
  - Cardio-respiratory arrest [Fatal]
  - Asthma [Unknown]
  - Inappropriate schedule of product administration [Unknown]
  - Leukaemia [Fatal]
  - Haematocrit decreased [Unknown]
